FAERS Safety Report 10571970 (Version 2)
Quarter: 2014Q4

REPORT INFORMATION
  Report Type: Spontaneous
  Country: FI (occurrence: FI)
  Receive Date: 20141107
  Receipt Date: 20141212
  Transmission Date: 20150529
  Serious: Yes (Other)
  Sender: FDA-Public Use
  Company Number: FI-BAUSCH-BL-2014-008024

PATIENT
  Sex: Female

DRUGS (2)
  1. METRONIDAZOLE. [Suspect]
     Active Substance: METRONIDAZOLE
     Indication: PROPHYLAXIS
     Route: 042
  2. CEFUROXIME. [Suspect]
     Active Substance: CEFUROXIME
     Indication: PROPHYLAXIS

REACTIONS (6)
  - Drug ineffective [Unknown]
  - Exposure during pregnancy [Unknown]
  - Streptococcal infection [Unknown]
  - Amniotic cavity infection [Unknown]
  - C-reactive protein increased [Unknown]
  - Pyrexia [Unknown]
